FAERS Safety Report 8143209-6 (Version None)
Quarter: 2012Q1

REPORT INFORMATION
  Report Type: 
  Country: None (occurrence: None)
  Receive Date: 20120217
  Receipt Date: 20120214
  Transmission Date: 20120608
  Serious: No
  Sender: FDA-Public Use
  Company Number: US-PFIZER INC-2012040898

PATIENT
  Sex: Female
  Weight: 81.633 kg

DRUGS (1)
  1. TOVIAZ [Suspect]
     Indication: MICTURITION URGENCY
     Dosage: 8 MG, DAILY
     Dates: start: 20120101

REACTIONS (1)
  - DIARRHOEA [None]
